FAERS Safety Report 9079819 (Version 1)
Quarter: 2013Q1

REPORT INFORMATION
  Report Type: Spontaneous
  Country: ES (occurrence: ES)
  Receive Date: 20130130
  Receipt Date: 20130130
  Transmission Date: 20140127
  Serious: Yes (Other)
  Sender: FDA-Public Use
  Company Number: ES-TEVA-382424ISR

PATIENT
  Sex: Male

DRUGS (9)
  1. FLUDARABINE [Suspect]
     Indication: CHRONIC LYMPHOCYTIC LEUKAEMIA
     Route: 065
  2. CYCLOPHOSPHAMIDE [Suspect]
     Indication: CHRONIC LYMPHOCYTIC LEUKAEMIA
     Route: 065
  3. MITOXANTRONE [Suspect]
     Indication: CHRONIC LYMPHOCYTIC LEUKAEMIA
     Route: 065
  4. CLADRIBINE [Suspect]
     Indication: CHRONIC LYMPHOCYTIC LEUKAEMIA
     Route: 065
  5. COTRIMOXAZOLE [Concomitant]
     Indication: PROPHYLAXIS
     Route: 065
  6. FILGRASTIM [Concomitant]
  7. PEGFILGRASTIM [Concomitant]
  8. ANTIBACTERIAL [Concomitant]
     Indication: PROPHYLAXIS
  9. ANTIVIRAL [Concomitant]
     Indication: PROPHYLAXIS

REACTIONS (1)
  - Lung neoplasm malignant [Unknown]
